FAERS Safety Report 4665051-0 (Version None)
Quarter: 2005Q2

REPORT INFORMATION
  Report Type: 
  Country: None (occurrence: None)
  Receive Date: 20050517
  Receipt Date: 20050513
  Transmission Date: 20051028
  Serious: Yes (Other)
  Sender: FDA-Public Use
  Company Number: GBR-2004-0001251

PATIENT
  Age: 40 Year
  Sex: Male

DRUGS (4)
  1. MORPHINE SULFATE [Suspect]
     Indication: PAIN
     Dosage: 100 MG, BID, ORAL
     Route: 048
  2. CLOZARIL [Suspect]
     Indication: SCHIZOPHRENIA
     Dosage: 50 MG, BID, ORAL
     Route: 048
     Dates: start: 20031104, end: 20031110
  3. VENLAFAXINE HCL [Concomitant]
  4. DIAZEPAM [Concomitant]

REACTIONS (5)
  - ANXIETY [None]
  - ELECTROCARDIOGRAM QT CORRECTED INTERVAL PROLONGED [None]
  - HYPOTENSION [None]
  - PULSE ABNORMAL [None]
  - TACHYCARDIA [None]
